FAERS Safety Report 16590521 (Version 2)
Quarter: 2021Q4

REPORT INFORMATION
  Report Type: Spontaneous
  Country: ES (occurrence: ES)
  Receive Date: 20190718
  Receipt Date: 20211012
  Transmission Date: 20220304
  Serious: Yes (Life-Threatening, Hospitalization, Other)
  Sender: FDA-Public Use
  Company Number: ES-AEMPS-514929

PATIENT
  Age: 68 Year
  Sex: Female

DRUGS (4)
  1. GABAPENTIN [Interacting]
     Active Substance: GABAPENTIN
     Indication: Trigeminal neuralgia
     Dosage: 600 MILLIGRAM, DAILY
     Route: 048
     Dates: start: 201902, end: 20190325
  2. LACOSAMIDE [Interacting]
     Active Substance: LACOSAMIDE
     Indication: Trigeminal neuralgia
     Dosage: 200 MILLIGRAM
     Route: 040
     Dates: start: 20190325, end: 20190325
  3. CARBAMAZEPINE [Interacting]
     Active Substance: CARBAMAZEPINE
     Indication: Trigeminal neuralgia
     Dosage: 700 MILLIGRAM, DAILY
     Route: 048
     Dates: start: 201104, end: 20190325
  4. LIORESAL [Interacting]
     Active Substance: BACLOFEN
     Indication: Trigeminal neuralgia
     Dosage: 30 MILLIGRAM, DAILY
     Route: 048
     Dates: start: 201802, end: 20190325

REACTIONS (1)
  - Depressed level of consciousness [Recovered/Resolved]

NARRATIVE: CASE EVENT DATE: 20190325
